FAERS Safety Report 6005213-3 (Version None)
Quarter: 2008Q4

REPORT INFORMATION
  Report Type: 
  Country: None (occurrence: None)
  Receive Date: 20081215
  Receipt Date: 20081204
  Transmission Date: 20090506
  Serious: Yes (Death, Hospitalization, Other)
  Sender: FDA-Public Use
  Company Number: 54967

PATIENT
  Age: 72 Year
  Sex: Male

DRUGS (1)
  1. AMIODARONE HCL [Suspect]
     Indication: ATRIAL FIBRILLATION
     Dosage: 200MG DAILY

REACTIONS (3)
  - DRUG INEFFECTIVE [None]
  - PULMONARY FIBROSIS [None]
  - RESPIRATORY FAILURE [None]
